FAERS Safety Report 24065953 (Version 1)
Quarter: 2024Q3

REPORT INFORMATION
  Report Type: Spontaneous
  Country: US (occurrence: None)
  Receive Date: 20240709
  Receipt Date: 20240709
  Transmission Date: 20241016
  Serious: No
  Sender: Public
  Company Number: None

PATIENT
  Age: 15 Year
  Sex: Female
  Weight: 102.7 kg

DRUGS (17)
  1. CYCLOPHOSPHAMIDE [Suspect]
     Active Substance: CYCLOPHOSPHAMIDE
     Dates: end: 20240315
  2. OLANZAPINE [Concomitant]
     Active Substance: OLANZAPINE
     Dates: end: 2024
  3. CALCIUM CARBONATE [Concomitant]
     Active Substance: CALCIUM CARBONATE
  4. CLONIDINE [Concomitant]
     Active Substance: CLONIDINE
  5. docusate sodume [Concomitant]
  6. HEPARIN [Concomitant]
     Active Substance: HEPARIN SODIUM
  7. HYDROXYZINE HYDROCHLORIDE [Concomitant]
     Active Substance: HYDROXYZINE HYDROCHLORIDE
  8. LIDOCAINE\PRILOCAINE [Concomitant]
     Active Substance: LIDOCAINE\PRILOCAINE
  9. ONDANSETRON [Concomitant]
     Active Substance: ONDANSETRON
  10. POLYETHYLENE GLYCOL [Concomitant]
     Active Substance: POLYETHYLENE GLYCOL
  11. PREGABALIN [Concomitant]
     Active Substance: PREGABALIN
  12. DACTINOMYCIN [Suspect]
     Active Substance: DACTINOMYCIN
  13. VINCRISTINE SULFATE [Suspect]
     Active Substance: VINCRISTINE SULFATE
     Dates: end: 20240216
  14. VINORELBINE TARTRATE [Suspect]
     Active Substance: VINORELBINE TARTRATE
     Dates: end: 20240322
  15. ALBUTEROL SULFATE [Concomitant]
     Active Substance: ALBUTEROL SULFATE
  16. CHLORHEXIDINE [Concomitant]
     Active Substance: CHLORHEXIDINE
  17. LACTULOSE [Concomitant]
     Active Substance: LACTULOSE

REACTIONS (4)
  - Peripheral motor neuropathy [None]
  - Peroneal nerve palsy [None]
  - Gait disturbance [None]
  - Therapy interrupted [None]

NARRATIVE: CASE EVENT DATE: 20240329
